FAERS Safety Report 15940942 (Version 1)
Quarter: 2019Q1

REPORT INFORMATION
  Report Type: Spontaneous
  Country: GB (occurrence: GB)
  Receive Date: 20190208
  Receipt Date: 20190208
  Transmission Date: 20190417
  Serious: Yes (Hospitalization, Other)
  Sender: FDA-Public Use
  Company Number: GB-MYLANLABS-2019M1011263

PATIENT
  Age: 19 Year
  Sex: Male

DRUGS (1)
  1. QUININE [Suspect]
     Active Substance: QUININE
     Indication: PRODUCT USED FOR UNKNOWN INDICATION
     Dosage: UNK

REACTIONS (9)
  - Drug abuse [Unknown]
  - Mydriasis [Recovered/Resolved]
  - Medication error [Unknown]
  - Intentional product misuse [Unknown]
  - Cinchonism [Recovered/Resolved]
  - Overdose [Unknown]
  - Pupillary light reflex tests abnormal [Recovered/Resolved]
  - Vision blurred [Recovered/Resolved]
  - Toxicity to various agents [Recovered/Resolved]
